FAERS Safety Report 20035164 (Version 2)
Quarter: 2021Q4

REPORT INFORMATION
  Report Type: Spontaneous
  Country: US (occurrence: US)
  Receive Date: 20211104
  Receipt Date: 20211116
  Transmission Date: 20220304
  Serious: Yes (Life-Threatening, Hospitalization)
  Sender: FDA-Public Use
  Company Number: US-TEVA-2021-US-1972639

PATIENT
  Age: 75 Year
  Sex: Female

DRUGS (2)
  1. ACETAMINOPHEN\HYDROCODONE [Suspect]
     Active Substance: ACETAMINOPHEN\HYDROCODONE
     Indication: Post herpetic neuralgia
     Route: 065
  2. NALOXONE [Suspect]
     Active Substance: NALOXONE
     Indication: Intentional product misuse
     Route: 042

REACTIONS (6)
  - Slow response to stimuli [Recovering/Resolving]
  - Miosis [Recovered/Resolved]
  - Intentional product misuse [Unknown]
  - Pulmonary oedema [Recovering/Resolving]
  - Stress cardiomyopathy [Unknown]
  - Respiratory distress [Recovering/Resolving]
